FAERS Safety Report 8724009 (Version 2)
Quarter: 2012Q4

REPORT INFORMATION
  Report Type: 
  Country: US (occurrence: US)
  Receive Date: 20120815
  Receipt Date: 20121220
  Transmission Date: 20130627
  Serious: Yes (Hospitalization, Other)
  Sender: FDA-Public Use
  Company Number: US-BAYER-2012-080873

PATIENT
  Age: 21 Year
  Sex: Female
  Weight: 81.63 kg

DRUGS (22)
  1. YAZ [Suspect]
     Indication: CONTRACEPTION
     Dosage: UNK
     Dates: start: 20081210, end: 2010
  2. YAZ [Suspect]
     Indication: PREMENSTRUAL SYNDROME
  3. BEYAZ [Suspect]
     Indication: CONTRACEPTION
     Dosage: UNK
     Dates: start: 20120318
  4. BEYAZ [Suspect]
     Indication: PREMENSTRUAL SYNDROME
  5. HORMONES NOS [Concomitant]
     Dosage: UNK
     Dates: start: 20110407
  6. MACROBID [Concomitant]
     Dosage: 100 mg, TID, HS
     Route: 048
     Dates: start: 20110628, end: 20110701
  7. PYRIDIUM [Concomitant]
     Dosage: 100 mg, TID
     Route: 048
     Dates: start: 20110628, end: 20110701
  8. PYRIDIUM [Concomitant]
     Dosage: 200 mg, UNK
     Route: 048
     Dates: start: 20120407
  9. PRENATAL VITAMINS [Concomitant]
     Dosage: UNK
     Dates: start: 20110407
  10. PRENATAL VITAMINS [Concomitant]
     Dosage: 1 tablet at  bedtime
     Route: 048
     Dates: start: 20111128
  11. FLEXERIL [Concomitant]
     Dosage: 5 mg, Every 6-8 hours as
     Route: 048
     Dates: start: 20110628
  12. FIORICET [Concomitant]
     Dosage: 50-325-40mg every 4 to 6hours as needed
     Route: 048
     Dates: start: 20110628, end: 20110703
  13. GENTAMYCIN [Concomitant]
     Dosage: 120 mg/3 ML, IVPB
     Route: 042
  14. GENTAMYCIN [Concomitant]
     Dosage: 90mg/2.25ml, IVPB
     Route: 042
  15. CLINDAMYCIN [Concomitant]
     Dosage: 900 mg/6ML, IVPB
     Route: 042
  16. AMBIEN [Concomitant]
     Indication: SLEEP DISORDER NOS
     Dosage: 10 mg, UNK
     Route: 048
  17. ATIVAN [Concomitant]
     Indication: ANXIETY
     Dosage: 0.5 mg, Every 6 hours as needed
     Route: 048
  18. VICODIN ES [Concomitant]
     Dosage: 1,
     Route: 048
     Dates: start: 20120407
  19. CIPRO [Concomitant]
     Dosage: 500 mg, UNK
     Route: 048
     Dates: start: 20120407
  20. PROZAC [Concomitant]
     Dosage: 30 mg, UNK
     Dates: start: 20120504
  21. MOTRIN [Concomitant]
     Dosage: 800 mg, UNK
     Dates: start: 20120504
  22. BACTRIM DS [Concomitant]

REACTIONS (10)
  - Stillbirth [None]
  - Stillbirth [None]
  - Thrombosis [None]
  - Myocardial infarction [None]
  - Injury [None]
  - Pain [None]
  - Emotional distress [None]
  - Pain [None]
  - General physical health deterioration [None]
  - Anxiety [None]
